FAERS Safety Report 7763029-1 (Version None)
Quarter: 2011Q3

REPORT INFORMATION
  Report Type: 
  Country: None (occurrence: None)
  Receive Date: 20110920
  Receipt Date: 20110916
  Transmission Date: 20111222
  Serious: Yes (Other)
  Sender: FDA-Public Use
  Company Number: US-TEVA-301081USA

PATIENT
  Sex: Female

DRUGS (2)
  1. AMIODARONE HYDROCHLORIDE [Concomitant]
     Indication: HEART RATE IRREGULAR
     Dosage: 200 MILLIGRAM;
     Route: 048
  2. WARFARIN SODIUM [Suspect]
     Indication: MITRAL VALVE DISEASE
     Dosage: 2.5 MG OR 5 MG DOSE RANGES
     Route: 048
     Dates: start: 20020101

REACTIONS (6)
  - FALL [None]
  - ASTHENIA [None]
  - SYNCOPE [None]
  - TRISMUS [None]
  - PROTHROMBIN TIME PROLONGED [None]
  - CHEST PAIN [None]
